FAERS Safety Report 7828764-5 (Version None)
Quarter: 2011Q4

REPORT INFORMATION
  Report Type: 
  Country: None (occurrence: None)
  Receive Date: 20111020
  Receipt Date: 20101021
  Transmission Date: 20120403
  Serious: No
  Sender: FDA-Public Use
  Company Number: US-MYLANLABS-2010S1019590

PATIENT
  Age: 61 Year
  Sex: Female

DRUGS (3)
  1. FUROSEMIDE [Suspect]
     Route: 048
     Dates: start: 20100401
  2. LEVOTHYROXINE SODIUM [Concomitant]
  3. CARVEDILOL [Suspect]
     Indication: BLOOD PRESSURE
     Route: 048
     Dates: start: 20100330

REACTIONS (2)
  - DISTURBANCE IN ATTENTION [None]
  - FATIGUE [None]
